FAERS Safety Report 7618469-8 (Version None)
Quarter: 2011Q3

REPORT INFORMATION
  Report Type: 
  Country: None (occurrence: None)
  Receive Date: 20110718
  Receipt Date: 20110705
  Transmission Date: 20111222
  Serious: Yes (Other)
  Sender: FDA-Public Use
  Company Number: GB-MERCK-1106GBR00069

PATIENT
  Age: 19 Year
  Sex: Male
  Weight: 70 kg

DRUGS (5)
  1. DICYCLOMINE HYDROCHLORIDE [Concomitant]
     Indication: CYSTITIS
     Route: 065
     Dates: start: 20100320
  2. PROPECIA [Suspect]
     Indication: ALOPECIA
     Route: 048
     Dates: start: 20110101, end: 20110601
  3. DICYCLOMINE HYDROCHLORIDE [Concomitant]
     Indication: ABDOMINAL PAIN
     Route: 065
     Dates: start: 20100320
  4. PROPECIA [Suspect]
     Route: 048
     Dates: start: 20110601
  5. VITAMINS (UNSPECIFIED) [Concomitant]
     Route: 065

REACTIONS (4)
  - GROIN PAIN [None]
  - TESTICULAR PAIN [None]
  - WRONG TECHNIQUE IN DRUG USAGE PROCESS [None]
  - ERECTILE DYSFUNCTION [None]
